FAERS Safety Report 9291476 (Version 1)
Quarter: 2013Q2

REPORT INFORMATION
  Report Type: Spontaneous
  Country: US (occurrence: US)
  Receive Date: 20130515
  Receipt Date: 20130515
  Transmission Date: 20140414
  Serious: No
  Sender: FDA-Public Use
  Company Number: US-BAUSCH-BL-2012-001742

PATIENT
  Age: 73 Year
  Sex: Female

DRUGS (4)
  1. BROMDAY 0.09% [Suspect]
     Indication: PREOPERATIVE CARE
     Dosage: 1 DROP; DAILY; OPHTHALMIC
     Route: 047
     Dates: start: 20121110
  2. BROMDAY 0.09% [Suspect]
     Indication: POSTOPERATIVE CARE
  3. FISH OIL [Concomitant]
     Indication: PRODUCT USED FOR UNKNOWN INDICATION
  4. ACETYLSALICYLIC ACID [Concomitant]
     Indication: PRODUCT USED FOR UNKNOWN INDICATION

REACTIONS (3)
  - Vertigo [Not Recovered/Not Resolved]
  - Nausea [Not Recovered/Not Resolved]
  - Vomiting [Recovered/Resolved]
